FAERS Safety Report 7516991-6 (Version None)
Quarter: 2011Q2

REPORT INFORMATION
  Report Type: 
  Country: None (occurrence: None)
  Receive Date: 20110502
  Receipt Date: 20110308
  Transmission Date: 20111010
  Serious: Yes (Other)
  Sender: FDA-Public Use
  Company Number: AMAG201100066

PATIENT
  Sex: Female

DRUGS (2)
  1. FERAHEME [Suspect]
     Dosage: 510 MG, SINGLE, INTRAVENOUS
     Route: 042
  2. OXYGEN [Concomitant]

REACTIONS (3)
  - RESPIRATORY ARREST [None]
  - NAUSEA [None]
  - VOMITING [None]
